FAERS Safety Report 5146405-5 (Version None)
Quarter: 2006Q4

REPORT INFORMATION
  Report Type: 
  Country: None (occurrence: None)
  Receive Date: 20061102
  Receipt Date: 20061025
  Transmission Date: 20070319
  Serious: Yes (Other)
  Sender: FDA-Public Use
  Company Number: 2006130546

PATIENT
  Age: 70 Year
  Sex: Female
  Weight: 91.173 kg

DRUGS (7)
  1. EXUBERA [Suspect]
     Indication: DIABETES MELLITUS
     Dosage: (4 MG), INHALATION
     Route: 055
     Dates: start: 20061017
  2. GLUCOTROL [Suspect]
     Indication: DIABETES MELLITUS
     Dates: end: 20061001
  3. GLUCOPHAGE [Suspect]
     Indication: DIABETES MELLITUS
     Dates: start: 20061001
  4. LANTUS [Suspect]
     Indication: DIABETES MELLITUS
     Dates: end: 20061001
  5. ANTIHYPERENSIVES(ANTIHYPERTENSIVE-S) [Concomitant]
  6. LEXAPRO (SCITALOPRAM) [Concomitant]
  7. TRAZODONE HCL [Concomitant]

REACTIONS (2)
  - BLOOD GLUCOSE DECREASED [None]
  - BLOOD GLUCOSE INCREASED [None]
